FAERS Safety Report 20535221 (Version 1)
Quarter: 2022Q1

REPORT INFORMATION
  Report Type: Spontaneous
  Country: NL (occurrence: NL)
  Receive Date: 20220302
  Receipt Date: 20220302
  Transmission Date: 20220423
  Serious: Yes (Life-Threatening, Hospitalization)
  Sender: FDA-Public Use
  Company Number: None

PATIENT
  Sex: Male
  Weight: 63.3 kg

DRUGS (5)
  1. CLOPIDOGREL [Suspect]
     Active Substance: CLOPIDOGREL BISULFATE
     Indication: Cerebral infarction
     Dosage: 75 MILLIGRAM DAILY; 1 DAILY 1 PIECE, FORM STRENGTH: 75MG / BRAND NAME NOT SPECIFIED
     Dates: start: 20220111, end: 20220122
  2. ALFUZOSIN HYDROCHLORIDE [Concomitant]
     Active Substance: ALFUZOSIN HYDROCHLORIDE
     Dosage: FORM STRENGTH: 10MG, / BRAND NAME NOT SPECIFIED, THERAPY START DATE AND END DATE: ASKU
  3. ENALAPRIL [Concomitant]
     Active Substance: ENALAPRIL
     Dosage: FORM STRENGTH: 10MG / BRAND NAME NOT SPECIFIED, THERAPY START DATE AND END DATE: ASKU
  4. METOPROLOL [Concomitant]
     Active Substance: METOPROLOL
     Dosage: FORM STRENGTH: 50MG / BRAND NAME NOT SPECIFIED, THERAPY START DATE AND END DATE: ASKU
  5. PANTOPRAZOLE [Concomitant]
     Active Substance: PANTOPRAZOLE
     Dosage: FORM STRENGTH: 20MG / BRAND NAME NOT SPECIFIED, THERAPY START DATE AND END DATE: ASKU

REACTIONS (1)
  - Pancytopenia [Recovered/Resolved]
